FAERS Safety Report 12681188 (Version 2)
Quarter: 2016Q4

REPORT INFORMATION
  Report Type: Spontaneous
  Country: US (occurrence: US)
  Receive Date: 20160824
  Receipt Date: 20161003
  Transmission Date: 20170207
  Serious: Yes (Hospitalization, Disabling, Other)
  Sender: FDA-Public Use
  Company Number: US-SEBELA IRELAND LIMITED-2016SEB01445

PATIENT
  Sex: Female
  Weight: 85.26 kg

DRUGS (1)
  1. IMURAN [Suspect]
     Active Substance: AZATHIOPRINE
     Dosage: 50 MG, 1X/DAY
     Route: 048
     Dates: start: 20151027, end: 20151104

REACTIONS (12)
  - Abasia [Unknown]
  - Nausea [Unknown]
  - Unevaluable event [Unknown]
  - Colitis microscopic [Unknown]
  - Renal disorder [Unknown]
  - Headache [Unknown]
  - Mouth ulceration [Unknown]
  - Coeliac disease [Unknown]
  - Urinary retention [Unknown]
  - Cardiac disorder [Unknown]
  - Dizziness [Unknown]
  - Hypertension [Unknown]

NARRATIVE: CASE EVENT DATE: 2015
